FAERS Safety Report 5318683-0 (Version None)
Quarter: 2007Q2

REPORT INFORMATION
  Report Type: 
  Country: None (occurrence: None)
  Receive Date: 20070502
  Receipt Date: 20070502
  Transmission Date: 20071010
  Serious: No
  Sender: FDA-Public Use
  Company Number: None

PATIENT
  Age: 48 Year
  Sex: Female

DRUGS (14)
  1. LYRICA [Suspect]
     Dosage: 25 MG TID
     Dates: start: 20060825, end: 20060929
  2. SIMVASTATIN [Suspect]
     Dosage: 20 MG HS
     Dates: start: 20060501, end: 20060929
  3. MERCAPTOPURINE [Concomitant]
  4. EFFEXOR [Concomitant]
  5. OMEPRAZOLE [Concomitant]
  6. BUMETANIDE [Concomitant]
  7. LEVOTHYROXINE SODIUM [Concomitant]
  8. SINGULAIR [Concomitant]
  9. VIT D [Concomitant]
  10. CALCIUM CITRATE [Concomitant]
  11. LANTUS [Concomitant]
  12. FOSAMAX [Concomitant]
  13. NOVOLOG INSULIN FLEX PEN [Concomitant]
  14. CENTRUM [Concomitant]

REACTIONS (6)
  - ABDOMINAL PAIN [None]
  - ANOREXIA [None]
  - JAUNDICE [None]
  - LIVER DISORDER [None]
  - NAUSEA [None]
  - NEUROPATHY PERIPHERAL [None]
